FAERS Safety Report 7784454-9 (Version None)
Quarter: 2011Q3

REPORT INFORMATION
  Report Type: 
  Country: None (occurrence: None)
  Receive Date: 20110928
  Receipt Date: 20110919
  Transmission Date: 20111222
  Serious: Yes (Other)
  Sender: FDA-Public Use
  Company Number: US-BAYER-2011-015936

PATIENT
  Age: 24 Year
  Sex: Female
  Weight: 54.422 kg

DRUGS (9)
  1. ONE-A-DAY [Concomitant]
     Dosage: UNK UNK, QD
     Route: 048
     Dates: start: 20040101
  2. VICODIN [Concomitant]
     Indication: PAIN
     Dosage: UNK UNK, PRN
     Route: 048
     Dates: start: 20081031
  3. PREVACID [Concomitant]
     Indication: GASTROOESOPHAGEAL REFLUX DISEASE
     Dosage: UNK UNK, PRN
     Route: 048
     Dates: start: 20080101
  4. IBUPROFEN (ADVIL) [Concomitant]
     Indication: PAIN
  5. IBUPROFEN (ADVIL) [Concomitant]
     Indication: HEADACHE
  6. BISMUTH SUBSALICYLATE [Concomitant]
     Indication: ABDOMINAL PAIN UPPER
     Dosage: UNK UNK, PRN
     Route: 048
  7. PRILOSEC [Concomitant]
     Route: 048
  8. YAZ [Suspect]
     Indication: CONTRACEPTION
     Dosage: UNK
     Dates: start: 20071112, end: 20090101
  9. IBUPROFEN (ADVIL) [Concomitant]
     Indication: DYSMENORRHOEA
     Dosage: UNK UNK, PRN
     Route: 048

REACTIONS (4)
  - CHOLECYSTITIS CHRONIC [None]
  - PAIN [None]
  - CHOLELITHIASIS [None]
  - PULMONARY EMBOLISM [None]
